FAERS Safety Report 14524393 (Version 2)
Quarter: 2018Q1

REPORT INFORMATION
  Report Type: Spontaneous
  Country: US (occurrence: US)
  Receive Date: 20180213
  Receipt Date: 20180313
  Transmission Date: 20180509
  Serious: No
  Sender: FDA-Public Use
  Company Number: US-PFIZER INC-2018062139

PATIENT
  Age: 53 Year
  Sex: Female
  Weight: 67.13 kg

DRUGS (1)
  1. PROCARDIA XL [Suspect]
     Active Substance: NIFEDIPINE
     Dosage: 60 MG, 2X/DAY
     Route: 048
     Dates: end: 201705

REACTIONS (2)
  - Drug effect incomplete [Unknown]
  - Expired product administered [Unknown]
